FAERS Safety Report 15507727 (Version 1)
Quarter: 2018Q4

REPORT INFORMATION
  Report Type: Spontaneous
  Country: US (occurrence: US)
  Receive Date: 20181016
  Receipt Date: 20181016
  Transmission Date: 20190205
  Serious: No
  Sender: FDA-Public Use
  Company Number: US-SA-2018SA284370

PATIENT
  Sex: Female

DRUGS (2)
  1. XYZAL ALLERGY 24HR [Suspect]
     Active Substance: LEVOCETIRIZINE DIHYDROCHLORIDE
     Indication: SINUS DISORDER
     Dosage: 5 MG, QD
     Route: 065
  2. ALKA SELTZER PLUS COLD AND SINUS [PARACETAMOL;PHENYLEPHRINE HYDROCHLOR [Concomitant]
     Route: 065

REACTIONS (1)
  - Headache [Unknown]
